FAERS Safety Report 20158789 (Version 2)
Quarter: 2022Q3

REPORT INFORMATION
  Report Type: Spontaneous
  Country: US (occurrence: US)
  Receive Date: 20211208
  Receipt Date: 20220714
  Transmission Date: 20221027
  Serious: No
  Sender: FDA-Public Use
  Company Number: US-SANOFI-00878863

PATIENT
  Age: 17 Year
  Sex: Female

DRUGS (11)
  1. DUPIXENT [Suspect]
     Active Substance: DUPILUMAB
     Indication: Dermatitis atopic
     Dosage: 400 MG, 1X
     Route: 058
     Dates: start: 20211110, end: 20211110
  2. DUPIXENT [Suspect]
     Active Substance: DUPILUMAB
     Indication: Asthma
  3. DUPIXENT [Suspect]
     Active Substance: DUPILUMAB
     Indication: Keratitis
  4. DUPIXENT [Suspect]
     Active Substance: DUPILUMAB
     Indication: Conjunctivitis
  5. DUPILUMAB [Suspect]
     Active Substance: DUPILUMAB
     Indication: Dermatitis atopic
     Dosage: 200 MG, QOW
     Dates: start: 20211128
  6. DUPILUMAB [Suspect]
     Active Substance: DUPILUMAB
     Indication: Asthma
  7. DUPILUMAB [Suspect]
     Active Substance: DUPILUMAB
     Indication: Keratitis
  8. DUPILUMAB [Suspect]
     Active Substance: DUPILUMAB
     Indication: Conjunctivitis
  9. ADVAIR HFA [Concomitant]
     Active Substance: FLUTICASONE PROPIONATE\SALMETEROL XINAFOATE
  10. RESTASIS [Concomitant]
     Active Substance: CYCLOSPORINE
     Indication: Conjunctivitis
  11. RESTASIS [Concomitant]
     Active Substance: CYCLOSPORINE
     Indication: Keratitis

REACTIONS (4)
  - Poor quality product administered [Unknown]
  - Wrong technique in device usage process [Unknown]
  - Inappropriate schedule of product administration [Unknown]
  - Product use in unapproved indication [Unknown]
